FAERS Safety Report 19316676 (Version 1)
Quarter: 2021Q2

REPORT INFORMATION
  Report Type: Spontaneous
  Country: US (occurrence: US)
  Receive Date: 20210527
  Receipt Date: 20210527
  Transmission Date: 20210717
  Serious: Yes (Hospitalization)
  Sender: FDA-Public Use
  Company Number: US-ELI_LILLY_AND_COMPANY-US202105010589

PATIENT
  Age: 65 Year
  Sex: Female

DRUGS (2)
  1. BAMLANIVIMAB 700MG [Suspect]
     Active Substance: BAMLANIVIMAB
     Indication: COVID-19
     Dosage: 700 MG, SINGLE
     Route: 042
     Dates: start: 20210512, end: 20210512
  2. ETESEVIMAB 700MG [Suspect]
     Active Substance: ETESEVIMAB
     Indication: COVID-19
     Dosage: 1400 MG, SINGLE
     Route: 042
     Dates: start: 20210512, end: 20210512

REACTIONS (19)
  - Blood alkaline phosphatase increased [Unknown]
  - Mobility decreased [Unknown]
  - Lymphocyte count decreased [Not Recovered/Not Resolved]
  - Fatigue [Recovering/Resolving]
  - Blood potassium decreased [Unknown]
  - Asthenia [Recovering/Resolving]
  - Dizziness [Unknown]
  - White blood cell count increased [Not Recovered/Not Resolved]
  - Oxygen saturation decreased [Unknown]
  - Paraesthesia [Unknown]
  - Hypoaesthesia [Unknown]
  - Asthenia [Recovering/Resolving]
  - Fall [Unknown]
  - Fall [Unknown]
  - Myalgia [Unknown]
  - Headache [Recovered/Resolved]
  - Infection [Unknown]
  - Gait disturbance [Unknown]
  - Neutrophil count increased [Not Recovered/Not Resolved]

NARRATIVE: CASE EVENT DATE: 20210512
